FAERS Safety Report 14459724 (Version 4)
Quarter: 2018Q2

REPORT INFORMATION
  Report Type: Spontaneous
  Country: US (occurrence: US)
  Receive Date: 20180130
  Receipt Date: 20180525
  Transmission Date: 20180711
  Serious: Yes (Other)
  Sender: FDA-Public Use
  Company Number: PHEH2018US003848

PATIENT
  Sex: Female
  Weight: 56.69 kg

DRUGS (3)
  1. ONDANSETRON HYDROCHLORIDE. [Suspect]
     Active Substance: ONDANSETRON HYDROCHLORIDE
     Indication: VOMITING IN PREGNANCY
     Dosage: 8 MG, Q8H
     Route: 065
     Dates: start: 20120626, end: 201207
  2. ZOFRAN [Suspect]
     Active Substance: ONDANSETRON HYDROCHLORIDE
     Indication: PRODUCT USED FOR UNKNOWN INDICATION
     Route: 048
  3. ONDANSETRON HYDROCHLORIDE. [Suspect]
     Active Substance: ONDANSETRON HYDROCHLORIDE
     Indication: VOMITING IN PREGNANCY
     Dosage: 4 MG, UNK
     Route: 065
     Dates: start: 20130114, end: 20130114

REACTIONS (14)
  - Injury [Unknown]
  - Uterine leiomyoma [Unknown]
  - Erythema [Unknown]
  - Headache [Unknown]
  - Product use in unapproved indication [Unknown]
  - Breast mass [Unknown]
  - Conjunctivitis [Unknown]
  - Alopecia [Unknown]
  - Emotional distress [Unknown]
  - Gastrooesophageal reflux disease [Unknown]
  - Pre-eclampsia [Unknown]
  - Galactocele [Unknown]
  - Mastitis [Unknown]
  - Maternal exposure during pregnancy [Unknown]
